FAERS Safety Report 12331755 (Version 1)
Quarter: 2016Q2

REPORT INFORMATION
  Report Type: Spontaneous
  Country: US (occurrence: None)
  Receive Date: 20160503
  Receipt Date: 20160503
  Transmission Date: 20160815
  Serious: Yes (Other)
  Sender: FDA-Public Use
  Company Number: None

PATIENT
  Age: 71 Year
  Sex: Female
  Weight: 56.7 kg

DRUGS (1)
  1. CIPROFLOXACIN, 500 MG TEVA [Suspect]
     Active Substance: CIPROFLOXACIN
     Indication: URINARY TRACT INFECTION
     Dosage: 14 TABLET(S) TWICE A DAY TAKEN BY MOUTH
     Route: 048

REACTIONS (5)
  - Cyst [None]
  - Joint crepitation [None]
  - Arthralgia [None]
  - Impaired driving ability [None]
  - Activities of daily living impaired [None]

NARRATIVE: CASE EVENT DATE: 20160215
